FAERS Safety Report 8206188-9 (Version None)
Quarter: 2012Q1

REPORT INFORMATION
  Report Type: 
  Country: None (occurrence: None)
  Receive Date: 20120313
  Receipt Date: 20111207
  Transmission Date: 20120608
  Serious: Yes (Death, Hospitalization)
  Sender: FDA-Public Use
  Company Number: PHHY2011CN115641

PATIENT
  Age: 22 Year
  Sex: Male

DRUGS (1)
  1. TELBIVUDINE [Suspect]
     Indication: HEPATITIS B
     Dosage: 600 MG, UNK
     Route: 048

REACTIONS (14)
  - COUGH [None]
  - DYSPHORIA [None]
  - DELIRIUM [None]
  - RHABDOMYOLYSIS [None]
  - ACUTE RESPIRATORY DISTRESS SYNDROME [None]
  - DYSPNOEA [None]
  - CHEST DISCOMFORT [None]
  - CHOKING SENSATION [None]
  - VOMITING [None]
  - LACTIC ACIDOSIS [None]
  - NAUSEA [None]
  - DISTRIBUTIVE SHOCK [None]
  - GAIT DISTURBANCE [None]
  - MYALGIA [None]
